FAERS Safety Report 6676525-5 (Version None)
Quarter: 2010Q2

REPORT INFORMATION
  Report Type: 
  Country: None (occurrence: None)
  Receive Date: 20100408
  Receipt Date: 20100329
  Transmission Date: 20101027
  Serious: Yes (Hospitalization, Other)
  Sender: FDA-Public Use
  Company Number: 2010SP009716

PATIENT
  Age: 30 Year
  Sex: Female
  Weight: 70.7611 kg

DRUGS (6)
  1. NUVARING [Suspect]
     Indication: CONTRACEPTION
     Dosage: VAG
     Route: 067
     Dates: start: 20071203, end: 20080208
  2. MEDROXYPROGESTERONE [Suspect]
     Indication: CONTRACEPTION
     Dates: start: 20080208
  3. SYNTHROID [Concomitant]
  4. TOBRADEX [Concomitant]
  5. CEPHALEXIN [Concomitant]
  6. HYDROCODONE BITARTRATE AND ACETAMINOPHEN [Concomitant]

REACTIONS (12)
  - BLOOD THYROID STIMULATING HORMONE DECREASED [None]
  - CHEST PAIN [None]
  - DYSFUNCTIONAL UTERINE BLEEDING [None]
  - FALL [None]
  - FRACTURED COCCYX [None]
  - HEAD INJURY [None]
  - INTERVERTEBRAL DISC DEGENERATION [None]
  - MENORRHAGIA [None]
  - OVARIAN CYST [None]
  - PULMONARY EMBOLISM [None]
  - REFUSAL OF TREATMENT BY PATIENT [None]
  - THYROID DISORDER [None]
